FAERS Safety Report 4696216-X (Version None)
Quarter: 2005Q2

REPORT INFORMATION
  Report Type: 
  Country: None (occurrence: None)
  Receive Date: 20050621
  Receipt Date: 20050603
  Transmission Date: 20051028
  Serious: Yes (Life-Threatening)
  Sender: FDA-Public Use
  Company Number: 2005AP03187

PATIENT
  Age: 82 Year
  Sex: Female

DRUGS (8)
  1. ANAPEINE [Suspect]
     Indication: NERVE BLOCK
     Route: 053
     Dates: start: 20050602, end: 20050602
  2. PREDNISOLONE [Concomitant]
     Indication: NERVE BLOCK
     Route: 053
  3. LANIRAPID [Concomitant]
     Route: 048
  4. LASIX [Concomitant]
  5. ALDACTONE [Concomitant]
     Route: 048
  6. MOBIC [Concomitant]
     Route: 048
  7. NEUROTROPIN [Concomitant]
  8. MARZULENE [Concomitant]

REACTIONS (4)
  - ANAPHYLACTIC SHOCK [None]
  - CARDIO-RESPIRATORY ARREST [None]
  - CONVULSION [None]
  - LOSS OF CONSCIOUSNESS [None]
